FAERS Safety Report 6962445-5 (Version None)
Quarter: 2010Q3

REPORT INFORMATION
  Report Type: 
  Country: None (occurrence: None)
  Receive Date: 20100902
  Receipt Date: 20100823
  Transmission Date: 20110219
  Serious: Yes (Other)
  Sender: FDA-Public Use
  Company Number: FR-CELGENEUS-056-21880-10082244

PATIENT
  Age: 75 Year
  Sex: Female

DRUGS (4)
  1. REVLIMID [Suspect]
     Route: 048
     Dates: start: 20100801, end: 20100820
  2. REVLIMID [Suspect]
  3. VIDAZA [Suspect]
     Route: 050
  4. VIDAZA [Suspect]

REACTIONS (1)
  - ANGIOEDEMA [None]
